FAERS Safety Report 10958686 (Version 1)
Quarter: 2015Q1

REPORT INFORMATION
  Report Type: Spontaneous
  Country: CN (occurrence: CN)
  Receive Date: 20150326
  Receipt Date: 20150326
  Transmission Date: 20150721
  Serious: Yes (Other)
  Sender: FDA-Public Use
  Company Number: CN-ALLERGAN-1505127US

PATIENT
  Age: 4 Decade
  Sex: Female

DRUGS (2)
  1. BOTOX [Suspect]
     Active Substance: ONABOTULINUMTOXINA
     Indication: MUSCLE HYPERTROPHY
     Dosage: 80 UNITS, SINGLE
     Dates: start: 20150309, end: 20150309
  2. BOTOX [Suspect]
     Active Substance: ONABOTULINUMTOXINA
     Indication: PRODUCT USED FOR UNKNOWN INDICATION
     Dosage: UNK, SINGLE
     Dates: start: 201502, end: 201502

REACTIONS (2)
  - Off label use [Unknown]
  - Thyroid neoplasm [Unknown]

NARRATIVE: CASE EVENT DATE: 2015
